FAERS Safety Report 6894038-2 (Version None)
Quarter: 2010Q3

REPORT INFORMATION
  Report Type: 
  Country: None (occurrence: None)
  Receive Date: 20100802
  Receipt Date: 20100720
  Transmission Date: 20110219
  Serious: No
  Sender: FDA-Public Use
  Company Number: US-JNJFOC-20100706741

PATIENT
  Sex: Female
  Weight: 71.22 kg

DRUGS (5)
  1. SANDOZ FENTANYL TRANSDERMAL SYSTEM [Suspect]
     Indication: FIBROMYALGIA
     Route: 062
  2. SANDOZ FENTANYL TRANSDERMAL SYSTEM [Suspect]
     Route: 062
  3. OXYCODONE HCL [Concomitant]
     Indication: FIBROMYALGIA
     Route: 065
  4. CORTISONE [Concomitant]
     Indication: FIBROMYALGIA
     Dosage: MONTHLY
     Route: 050
  5. LIDOCAINE [Concomitant]
     Indication: FIBROMYALGIA
     Dosage: MONTHLY
     Route: 050

REACTIONS (2)
  - DRUG ADMINISTERED AT INAPPROPRIATE SITE [None]
  - DRUG EFFECT DECREASED [None]
